FAERS Safety Report 7586582-X (Version None)
Quarter: 2011Q3

REPORT INFORMATION
  Report Type: 
  Country: None (occurrence: None)
  Receive Date: 20110701
  Receipt Date: 20110621
  Transmission Date: 20111222
  Serious: Yes (Other)
  Sender: FDA-Public Use
  Company Number: DE-ABBOTT-11P-062-0835233-00

PATIENT
  Age: 77 Year

DRUGS (1)
  1. PARICALCITOL [Suspect]
     Indication: PRODUCT USED FOR UNKNOWN INDICATION
     Dosage: 2 AMPOULES  WITH 5 MICROG/ML PER WEEK
     Route: 042
     Dates: start: 20070327

REACTIONS (1)
  - HOSPITALISATION [None]
